FAERS Safety Report 7577379-5 (Version None)
Quarter: 2011Q2

REPORT INFORMATION
  Report Type: 
  Country: None (occurrence: None)
  Receive Date: 20110628
  Receipt Date: 20110616
  Transmission Date: 20111010
  Serious: Yes (Hospitalization)
  Sender: FDA-Public Use
  Company Number: AT-JNJFOC-20110601022

PATIENT
  Sex: Female
  Weight: 95 kg

DRUGS (3)
  1. USTEKINUMAB [Suspect]
     Route: 058
     Dates: start: 20100501
  2. USTEKINUMAB [Suspect]
     Route: 058
     Dates: start: 20110218
  3. USTEKINUMAB [Suspect]
     Indication: PSORIASIS
     Route: 058
     Dates: start: 20110520

REACTIONS (1)
  - TONSILLITIS [None]
